FAERS Safety Report 8120660-1 (Version None)
Quarter: 2012Q1

REPORT INFORMATION
  Report Type: 
  Country: None (occurrence: None)
  Receive Date: 20120207
  Receipt Date: 20120130
  Transmission Date: 20120608
  Serious: Yes (Hospitalization)
  Sender: FDA-Public Use
  Company Number: US-BAYER-2011-056016

PATIENT
  Age: 44 Year
  Sex: Female
  Weight: 102 kg

DRUGS (7)
  1. ZOLOFT [Concomitant]
  2. LIPITOR [Concomitant]
  3. FOLIC ACID [Concomitant]
  4. LEVOTHYROXINE SODIUM [Concomitant]
  5. YASMIN [Suspect]
     Indication: MENOPAUSE
  6. YASMIN [Suspect]
     Indication: ACNE
     Dosage: UNK
     Route: 048
     Dates: start: 20030901, end: 20040401
  7. YASMIN [Suspect]
     Indication: GENITAL HAEMORRHAGE

REACTIONS (7)
  - DYSPNOEA [None]
  - CHEST PAIN [None]
  - PAIN [None]
  - INJURY [None]
  - PULMONARY EMBOLISM [None]
  - EMOTIONAL DISTRESS [None]
  - ANXIETY [None]
